FAERS Safety Report 4695892-5 (Version None)
Quarter: 2005Q2

REPORT INFORMATION
  Report Type: 
  Country: None (occurrence: None)
  Receive Date: 20050621
  Receipt Date: 20050329
  Transmission Date: 20051028
  Serious: Yes (Hospitalization)
  Sender: FDA-Public Use
  Company Number: US-GLAXOSMITHKLINE-A0551558A

PATIENT
  Age: 77 Year
  Sex: Female
  Weight: 102 kg

DRUGS (2)
  1. CITRUCEL SUGAR-FREE SUSPENSION ORANGE [Suspect]
     Indication: IRRITABLE BOWEL SYNDROME
     Dosage: 2TBS PER DAY
     Route: 048
     Dates: start: 19980101
  2. LISINOPRIL [Concomitant]
     Indication: BLOOD PRESSURE
     Route: 048

REACTIONS (6)
  - ABDOMINAL PAIN [None]
  - DIVERTICULITIS [None]
  - FLATULENCE [None]
  - HYPOAESTHESIA [None]
  - ILL-DEFINED DISORDER [None]
  - TRANSIENT ISCHAEMIC ATTACK [None]
